FAERS Safety Report 4970929-4 (Version None)
Quarter: 2006Q2

REPORT INFORMATION
  Report Type: 
  Country: None (occurrence: None)
  Receive Date: 20060412
  Receipt Date: 20060310
  Transmission Date: 20061013
  Serious: Yes (Hospitalization)
  Sender: FDA-Public Use
  Company Number: ES-AVENTIS-200611565EU

PATIENT
  Age: 74 Year
  Sex: Male

DRUGS (2)
  1. RILUTEK [Suspect]
     Indication: AMYOTROPHIC LATERAL SCLEROSIS
  2. AMOXICILLIN + CLAVULANATE POTASSIUM [Concomitant]
     Dosage: DOSE: 875/125

REACTIONS (4)
  - COUGH [None]
  - DYSPNOEA [None]
  - HYPERHIDROSIS [None]
  - LUNG INFILTRATION [None]
